FAERS Safety Report 13439190 (Version 1)
Quarter: 2017Q2

REPORT INFORMATION
  Report Type: Spontaneous
  Country: US (occurrence: US)
  Receive Date: 20170413
  Receipt Date: 20170413
  Transmission Date: 20170830
  Serious: No
  Sender: FDA-Public Use
  Company Number: US-ROCHE-1205334

PATIENT
  Age: 12 Year
  Sex: Male

DRUGS (6)
  1. VITAMIN C [Concomitant]
     Active Substance: ASCORBIC ACID
     Route: 065
  2. VITAMIN E [Concomitant]
     Active Substance: .ALPHA.-TOCOPHEROL
     Route: 065
  3. B-CAROTENE [Concomitant]
     Route: 065
  4. VITAMIN A [Concomitant]
     Active Substance: VITAMIN A
     Route: 065
  5. XENICAL [Suspect]
     Active Substance: ORLISTAT
     Indication: HYPERCHYLOMICRONAEMIA
     Route: 065
  6. VITAMIN K [Concomitant]
     Active Substance: PHYTONADIONE
     Route: 065

REACTIONS (1)
  - Lipids abnormal [Unknown]
